FAERS Safety Report 9039307 (Version 1)
Quarter: 2013Q1

REPORT INFORMATION
  Report Type: Report from Study
  Country: US (occurrence: US)
  Receive Date: 20130129
  Receipt Date: 20130129
  Transmission Date: 20140127
  Serious: No
  Sender: FDA-Public Use
  Company Number: US-ABBOTT-12P-163-0934458-00

PATIENT
  Age: 28 Year
  Sex: Male

DRUGS (3)
  1. HUMIRA 40 MG/0.8 ML PEN [Suspect]
     Indication: CROHN^S DISEASE
     Dosage: 160MG DAY 1
     Dates: start: 201204, end: 201204
  2. HUMIRA 40 MG/0.8 ML PEN [Suspect]
     Dosage: 80 MG
  3. HUMIRA 40 MG/0.8 ML PEN [Suspect]
     Dosage: EVERY OTHER WEEK AS MAINTENANCE

REACTIONS (2)
  - Diarrhoea [Unknown]
  - Diarrhoea [Unknown]
